FAERS Safety Report 4659502-5 (Version None)
Quarter: 2005Q2

REPORT INFORMATION
  Report Type: 
  Country: None (occurrence: None)
  Receive Date: 20050412
  Receipt Date: 20050222
  Transmission Date: 20051028
  Serious: No
  Sender: FDA-Public Use
  Company Number: 2005S1000028

PATIENT
  Age: 60 Year
  Sex: Female
  Weight: 100 kg

DRUGS (19)
  1. CUBICIN [Suspect]
     Indication: OSTEOMYELITIS
     Dosage: 500 MG; Q24H; IV
     Route: 042
     Dates: start: 20050131
  2. TRIAMCINOLONE [Concomitant]
  3. FLUTICASONE PROPIONATE [Concomitant]
  4. ALBUTEROL [Concomitant]
  5. SALMETEROL [Concomitant]
  6. MONTELUKAST [Concomitant]
  7. GUAIFENESIN [Concomitant]
  8. HYDROCHLOROTHIAZIDE [Concomitant]
  9. POTASSIUM CHLORIDE [Concomitant]
  10. CELECOXIB [Concomitant]
  11. TRAMADOL HCL [Concomitant]
  12. GABAPENTIN [Concomitant]
  13. CARISOPRODOL [Concomitant]
  14. CITALOPRAM [Concomitant]
  15. CLONAZEPAM [Concomitant]
  16. ESTROGENS [Concomitant]
  17. HEPARIN [Concomitant]
  18. VANCOMYCIN [Concomitant]
  19. ZOSYN [Concomitant]

REACTIONS (1)
  - BLOOD CREATINE PHOSPHOKINASE INCREASED [None]
